FAERS Safety Report 8433787-1 (Version None)
Quarter: 2012Q2

REPORT INFORMATION
  Report Type: 
  Country: None (occurrence: None)
  Receive Date: 20120613
  Receipt Date: 20120604
  Transmission Date: 20120825
  Serious: Yes (Hospitalization)
  Sender: FDA-Public Use
  Company Number: FR-ASTRAZENECA-2012SE37908

PATIENT
  Sex: Female

DRUGS (1)
  1. NAROPIN [Suspect]
     Indication: ANAESTHESIA
     Route: 058
     Dates: start: 20120430, end: 20120430

REACTIONS (1)
  - GRAND MAL CONVULSION [None]
